FAERS Safety Report 6072204-6 (Version None)
Quarter: 2009Q1

REPORT INFORMATION
  Report Type: 
  Country: None (occurrence: None)
  Receive Date: 20090206
  Receipt Date: 20090206
  Transmission Date: 20090719
  Serious: Yes (Hospitalization)
  Sender: FDA-Public Use
  Company Number: None

PATIENT
  Age: 40 Year
  Sex: Female
  Weight: 58.9676 kg

DRUGS (1)
  1. CHANTIX [Suspect]
     Indication: SMOKING CESSATION THERAPY
     Dosage: 0.5MG 1 DAILY / PILL
     Dates: start: 20090118, end: 20090203

REACTIONS (9)
  - ABNORMAL DREAMS [None]
  - CARDIAC DISCOMFORT [None]
  - CHEST PAIN [None]
  - DIZZINESS [None]
  - EUPHORIC MOOD [None]
  - HYPOAESTHESIA [None]
  - MEMORY IMPAIRMENT [None]
  - PANIC ATTACK [None]
  - TACHYPHRENIA [None]
